FAERS Safety Report 8185077 (Version 3)
Quarter: 2018Q3

REPORT INFORMATION
  Report Type: Spontaneous
  Country: US (occurrence: US)
  Receive Date: 20111018
  Receipt Date: 20180705
  Transmission Date: 20181010
  Serious: No
  Sender: FDA-Public Use
  Company Number: US-ASTRAZENECA-2011SE20932

PATIENT
  Age: 76 Year
  Sex: Female
  Weight: 57.2 kg

DRUGS (8)
  1. SYMBICORT [Suspect]
     Active Substance: BUDESONIDE\FORMOTEROL FUMARATE DIHYDRATE
     Indication: CHRONIC OBSTRUCTIVE PULMONARY DISEASE
     Dosage: 160/4.5 MCG 1 PUFF TWO TIMES A DAY
     Route: 055
     Dates: start: 2010
  2. SYMBICORT [Suspect]
     Active Substance: BUDESONIDE\FORMOTEROL FUMARATE DIHYDRATE
     Indication: DYSPNOEA
     Dosage: 160/4.5 MCG TWO PUFF TWO TIMES A DAY
     Route: 055
     Dates: start: 20170929
  3. SYMBICORT [Suspect]
     Active Substance: BUDESONIDE\FORMOTEROL FUMARATE DIHYDRATE
     Indication: CHRONIC OBSTRUCTIVE PULMONARY DISEASE
     Dosage: 160/4.5 MCG TWO PUFF TWO TIMES A DAY
     Route: 055
     Dates: start: 20170929
  4. SYMBICORT [Suspect]
     Active Substance: BUDESONIDE\FORMOTEROL FUMARATE DIHYDRATE
     Indication: DYSPNOEA
     Dosage: 160/4.5 MCG 1 PUFF TWO TIMES A DAY
     Route: 055
     Dates: start: 2010
  5. SYMBICORT [Suspect]
     Active Substance: BUDESONIDE\FORMOTEROL FUMARATE DIHYDRATE
     Indication: ASTHMA
     Dosage: 160/4.5 MCG 1 PUFF TWO TIMES A DAY
     Route: 055
     Dates: start: 2010
  6. SYMBICORT [Suspect]
     Active Substance: BUDESONIDE\FORMOTEROL FUMARATE DIHYDRATE
     Indication: EMPHYSEMA
     Dosage: 160/4.5 MCG 1 PUFF TWO TIMES A DAY
     Route: 055
     Dates: start: 2010
  7. SYMBICORT [Suspect]
     Active Substance: BUDESONIDE\FORMOTEROL FUMARATE DIHYDRATE
     Indication: EMPHYSEMA
     Dosage: 160/4.5 MCG TWO PUFF TWO TIMES A DAY
     Route: 055
     Dates: start: 20170929
  8. SYMBICORT [Suspect]
     Active Substance: BUDESONIDE\FORMOTEROL FUMARATE DIHYDRATE
     Indication: ASTHMA
     Dosage: 160/4.5 MCG TWO PUFF TWO TIMES A DAY
     Route: 055
     Dates: start: 20170929

REACTIONS (17)
  - Dyspnoea [Unknown]
  - Arthritis [Unknown]
  - Breath sounds abnormal [Unknown]
  - Osteoarthritis [Unknown]
  - Intentional product misuse [Unknown]
  - Malaise [Unknown]
  - Condition aggravated [Unknown]
  - Underdose [Unknown]
  - Influenza [Unknown]
  - Body height decreased [Unknown]
  - Dysphonia [Unknown]
  - Pharyngeal disorder [Unknown]
  - Device failure [Unknown]
  - Drug dose omission [Unknown]
  - Eye disorder [Unknown]
  - Gait disturbance [Unknown]
  - Drug ineffective [Unknown]
